FAERS Safety Report 9459697 (Version 1)
Quarter: 2013Q3

REPORT INFORMATION
  Report Type: Spontaneous
  Country: CN (occurrence: CN)
  Receive Date: 20130815
  Receipt Date: 20130815
  Transmission Date: 20140515
  Serious: Yes (Other)
  Sender: FDA-Public Use
  Company Number: CN-PERRIGO-13CN008213

PATIENT
  Age: 56 Year
  Sex: Male

DRUGS (5)
  1. GENTAMICIN SULFATE RX 0.1% 1A5 [Suspect]
     Indication: ANTIBIOTIC PROPHYLAXIS
     Dosage: UNK, UNK
     Route: 061
     Dates: start: 2008
  2. CEFEPIME [Suspect]
     Indication: PERITONITIS BACTERIAL
     Route: 065
  3. CEFEPIME [Suspect]
     Indication: KLEBSIELLA INFECTION
  4. CEFEPIME [Suspect]
     Indication: STREPTOCOCCAL INFECTION
  5. CEFEPIME [Suspect]
     Indication: ALPHA HAEMOLYTIC STREPTOCOCCAL INFECTION

REACTIONS (7)
  - Mycobacterial peritonitis [Recovered/Resolved with Sequelae]
  - Mycobacterium abscessus infection [Recovered/Resolved with Sequelae]
  - Peritonitis bacterial [Recovered/Resolved]
  - Peritonitis [Recovered/Resolved]
  - Klebsiella infection [Recovered/Resolved]
  - Alpha haemolytic streptococcal infection [Recovered/Resolved]
  - Streptococcal infection [Recovered/Resolved]
